FAERS Safety Report 15384593 (Version 1)
Quarter: 2018Q3

REPORT INFORMATION
  Report Type: Spontaneous
  Country: US (occurrence: US)
  Receive Date: 20180906
  Receipt Date: 20180906
  Transmission Date: 20181010
  Serious: Yes (Life-Threatening, Hospitalization, Disabling)
  Sender: FDA-Public Use
  Company Number: None

PATIENT
  Age: 49 Year
  Sex: Female
  Weight: 67.5 kg

DRUGS (7)
  1. 81 MG ASPIRIN [Concomitant]
     Active Substance: ASPIRIN
  2. NATURE MADE MULTI VITAMIN [Concomitant]
  3. PONARIS OIL [Concomitant]
  4. CVS SALINE NASAL SPRAY [Suspect]
     Active Substance: SODIUM CHLORIDE
     Indication: RHINORRHOEA
     Dosage: ?          OTHER ROUTE:THROUGH NOSE?
     Dates: start: 20080101, end: 20180831
  5. METOTOPRAL [Concomitant]
  6. CVS SALINE NASAL SPRAY [Suspect]
     Active Substance: SODIUM CHLORIDE
     Indication: PROPHYLAXIS
  7. PREDNISONE. [Concomitant]
     Active Substance: PREDNISONE

REACTIONS (7)
  - Atrial fibrillation [None]
  - Renal failure [None]
  - Cardiac failure [None]
  - Dyspnoea [None]
  - Peripheral swelling [None]
  - Nausea [None]
  - Dialysis [None]

NARRATIVE: CASE EVENT DATE: 20171015
